FAERS Safety Report 8505105-1 (Version None)
Quarter: 2012Q3

REPORT INFORMATION
  Report Type: 
  Country: None (occurrence: None)
  Receive Date: 20120712
  Receipt Date: 20120706
  Transmission Date: 20120928
  Serious: Yes (Hospitalization, Other)
  Sender: FDA-Public Use
  Company Number: PHHY2012FR058560

PATIENT
  Age: 65 Year
  Sex: Male

DRUGS (1)
  1. TEGRETOL [Suspect]
     Indication: EPILEPSY
     Dosage: 400 MG, UNK
     Dates: start: 20070101

REACTIONS (7)
  - PULMONARY SEPSIS [None]
  - THROMBOCYTOPENIA [None]
  - LUNG DISORDER [None]
  - FOLATE DEFICIENCY [None]
  - ACUTE CORONARY SYNDROME [None]
  - ANAEMIA MACROCYTIC [None]
  - RENAL FAILURE ACUTE [None]
